FAERS Safety Report 10396343 (Version 5)
Quarter: 2015Q1

REPORT INFORMATION
  Report Type: Report from Study
  Country: US (occurrence: US)
  Receive Date: 20140820
  Receipt Date: 20150302
  Transmission Date: 20150720
  Serious: Yes (Death, Hospitalization)
  Sender: FDA-Public Use
  Company Number: US-VERTEX PHARMACEUTICALS INC-2014-003497

PATIENT
  Age: 34 Year
  Sex: Female

DRUGS (1)
  1. IVACAFTOR [Suspect]
     Active Substance: IVACAFTOR
     Indication: CYSTIC FIBROSIS
     Dosage: 150 MG, BID
     Route: 048
     Dates: start: 20120418

REACTIONS (10)
  - Acute kidney injury [Recovered/Resolved]
  - Infective exacerbation of bronchiectasis [Recovered/Resolved]
  - PCO2 increased [Recovered/Resolved]
  - Pseudomonas infection [Recovered/Resolved]
  - White blood cell count increased [Recovered/Resolved]
  - Dyspnoea [Recovered/Resolved]
  - Death [Fatal]
  - Staphylococcus test positive [Recovered/Resolved]
  - Chest pain [Recovered/Resolved]
  - Malaise [Recovered/Resolved]

NARRATIVE: CASE EVENT DATE: 2014
